FAERS Safety Report 13017002 (Version 1)
Quarter: 2016Q4

REPORT INFORMATION
  Report Type: Spontaneous
  Country: US (occurrence: US)
  Receive Date: 20161210
  Receipt Date: 20161210
  Transmission Date: 20170207
  Serious: No
  Sender: FDA-Public Use
  Company Number: None

PATIENT
  Age: 36 Year
  Sex: Female
  Weight: 72.9 kg

DRUGS (3)
  1. CARMEX CLASSIC LIP BALM MEDICATED [Suspect]
     Active Substance: CAMPHOR (SYNTHETIC)\PETROLATUM
     Indication: LIP DRY
     Dosage: ?          QUANTITY:1 GEL;?
     Route: 061
     Dates: start: 20161209, end: 20161209
  2. ZOLOFT [Concomitant]
     Active Substance: SERTRALINE HYDROCHLORIDE
  3. CARMEX CLASSIC LIP BALM MEDICATED [Suspect]
     Active Substance: CAMPHOR (SYNTHETIC)\PETROLATUM
     Indication: CHAPPED LIPS
     Dosage: ?          QUANTITY:1 GEL;?
     Route: 061
     Dates: start: 20161209, end: 20161209

REACTIONS (10)
  - Oral discomfort [None]
  - Tongue blistering [None]
  - Oropharyngeal pain [None]
  - Hypoaesthesia oral [None]
  - Paraesthesia oral [None]
  - Salivary hypersecretion [None]
  - Pruritus [None]
  - Lip pain [None]
  - Dysphagia [None]
  - Swollen tongue [None]

NARRATIVE: CASE EVENT DATE: 20161209
